FAERS Safety Report 7828958-9 (Version None)
Quarter: 2011Q4

REPORT INFORMATION
  Report Type: 
  Country: None (occurrence: None)
  Receive Date: 20111020
  Receipt Date: 20111017
  Transmission Date: 20120403
  Serious: No
  Sender: FDA-Public Use
  Company Number: US-BAYER-2011-101082

PATIENT
  Age: 55 Year
  Sex: Female

DRUGS (3)
  1. BARIUM [Concomitant]
  2. ULTRAVIST 150 [Suspect]
     Indication: ABDOMINAL PAIN LOWER
  3. ULTRAVIST 150 [Suspect]
     Indication: COMPUTERISED TOMOGRAM
     Dosage: 170 ML, ONCE AT RATE OF 2.5 ML
     Route: 042
     Dates: start: 20111017, end: 20111017

REACTIONS (3)
  - PRURITUS GENERALISED [None]
  - ERYTHEMA [None]
  - URTICARIA [None]
